FAERS Safety Report 8110736-7 (Version None)
Quarter: 2012Q1

REPORT INFORMATION
  Report Type: 
  Country: None (occurrence: None)
  Receive Date: 20120203
  Receipt Date: 20120125
  Transmission Date: 20120608
  Serious: Yes (Hospitalization)
  Sender: FDA-Public Use
  Company Number: US-GENZYME-MOZO-1000604

PATIENT
  Sex: Female

DRUGS (3)
  1. NEUPOGEN [Concomitant]
     Indication: ACUTE MYELOID LEUKAEMIA
     Dosage: 10 MCG/KG, UNK
     Route: 058
  2. MOZOBIL [Suspect]
     Indication: ACUTE MYELOID LEUKAEMIA
     Dosage: 240 MCG/KG, UNK
     Route: 058
  3. SORAFENIB [Concomitant]
     Indication: ACUTE MYELOID LEUKAEMIA
     Dosage: 400 MG, BID
     Route: 048

REACTIONS (5)
  - FLUID OVERLOAD [None]
  - FEBRILE NEUTROPENIA [None]
  - OPPORTUNISTIC INFECTION [None]
  - CONVULSION [None]
  - LYMPHOPENIA [None]
